FAERS Safety Report 7902370-6 (Version None)
Quarter: 2011Q4

REPORT INFORMATION
  Report Type: 
  Country: None (occurrence: None)
  Receive Date: 20111108
  Receipt Date: 20111026
  Transmission Date: 20120403
  Serious: Yes (Death)
  Sender: FDA-Public Use
  Company Number: PT-MYLANLABS-2011S1022594

PATIENT
  Age: 45 Year
  Sex: Female

DRUGS (5)
  1. DIPLEXIL [Suspect]
     Dosage: 5 EMPTY BLISTER PACKS FOUND NEAR BODY
     Route: 065
  2. OXAZEPAM [Suspect]
     Route: 065
  3. NORDAZEPAM [Suspect]
     Route: 065
  4. TIAPRIDE [Suspect]
     Route: 065
  5. MIRTAZAPINE [Suspect]
     Route: 065

REACTIONS (7)
  - PULMONARY CONGESTION [None]
  - TOXICITY TO VARIOUS AGENTS [None]
  - HEPATIC STEATOSIS [None]
  - LIVER DISORDER [None]
  - COMPLETED SUICIDE [None]
  - RENAL DISORDER [None]
  - INTENTIONAL OVERDOSE [None]
